FAERS Safety Report 6255572-1 (Version None)
Quarter: 2009Q2

REPORT INFORMATION
  Report Type: 
  Country: None (occurrence: None)
  Receive Date: 20090630
  Receipt Date: 20090616
  Transmission Date: 20091009
  Serious: Yes (Other)
  Sender: FDA-Public Use
  Company Number: 230013M08SWE

PATIENT
  Age: 31 Year
  Sex: Female

DRUGS (1)
  1. REBIF [Suspect]
     Dosage: 44 MCG, 3 IN 1 WEEKS
     Dates: start: 20080401, end: 20080901

REACTIONS (9)
  - CHILLS [None]
  - DRUG EFFECT DECREASED [None]
  - DRUG EXPOSURE BEFORE PREGNANCY [None]
  - HEADACHE [None]
  - INJECTION SITE PRURITUS [None]
  - INJECTION SITE SWELLING [None]
  - OPTIC NEURITIS [None]
  - PREGNANCY [None]
  - RASH [None]
